FAERS Safety Report 9443878 (Version 3)
Quarter: 2013Q3

REPORT INFORMATION
  Report Type: Report from Study
  Country: JP (occurrence: JP)
  Receive Date: 20130806
  Receipt Date: 20130828
  Transmission Date: 20140515
  Serious: Yes (Other)
  Sender: FDA-Public Use
  Company Number: PHHY2013JP053494

PATIENT
  Age: 57 Year
  Sex: Male

DRUGS (3)
  1. AFINITOR [Suspect]
     Indication: METASTATIC RENAL CELL CARCINOMA
     Dosage: 10 MG, DAILY
     Route: 048
     Dates: start: 20111018, end: 20120910
  2. AFINITOR [Suspect]
     Dosage: 5 MG, DAILY
     Route: 048
     Dates: start: 20120911
  3. ZOMETA [Suspect]
     Indication: METASTATIC RENAL CELL CARCINOMA
     Dosage: 4 MG, UNK
     Dates: start: 201110

REACTIONS (5)
  - Metastatic renal cell carcinoma [Unknown]
  - Malignant neoplasm progression [Unknown]
  - Blood triglycerides increased [Unknown]
  - Renal impairment [Recovering/Resolving]
  - Blood creatinine increased [Unknown]
